FAERS Safety Report 25346910 (Version 1)
Quarter: 2025Q2

REPORT INFORMATION
  Report Type: Spontaneous
  Country: ES (occurrence: ES)
  Receive Date: 20250522
  Receipt Date: 20250522
  Transmission Date: 20250716
  Serious: Yes (Hospitalization, Other)
  Sender: AUROBINDO
  Company Number: ES-KRKA-ES2022K10332LIT

PATIENT
  Age: 25 Year
  Sex: Male

DRUGS (3)
  1. CLOZAPINE [Suspect]
     Active Substance: CLOZAPINE
     Indication: Schizophrenia
     Dosage: 400 MILLIGRAM, ONCE A DAY (400 MG, PER DAY)
     Route: 065
  2. PALIPERIDONE [Suspect]
     Active Substance: PALIPERIDONE
     Indication: Schizophrenia
     Dosage: 12 MILLIGRAM, ONCE A DAY (12 MG, PER DAY)
     Route: 048
  3. PALIPERIDONE [Suspect]
     Active Substance: PALIPERIDONE
     Dosage: 150 MILLIGRAM, ONCE A DAY (150 MG, PER DAY EVERY 28 DAYS0
     Route: 048

REACTIONS (9)
  - Drug ineffective [Recovered/Resolved]
  - Dysarthria [Unknown]
  - Drooling [Unknown]
  - Muscle rigidity [Unknown]
  - Tremor [Unknown]
  - Somnolence [Unknown]
  - Sexual dysfunction [Unknown]
  - Salivary hypersecretion [Unknown]
  - Treatment noncompliance [Unknown]
